FAERS Safety Report 5696718-3 (Version None)
Quarter: 2008Q2

REPORT INFORMATION
  Report Type: 
  Country: None (occurrence: None)
  Receive Date: 20080408
  Receipt Date: 20080331
  Transmission Date: 20081010
  Serious: Yes (Life-Threatening, Hospitalization)
  Sender: FDA-Public Use
  Company Number: JP-MERCK-0803USA03963

PATIENT
  Age: 80 Year
  Sex: Female
  Weight: 51 kg

DRUGS (11)
  1. HYZAAR [Suspect]
     Indication: HYPERTENSION
     Route: 048
     Dates: start: 20070904, end: 20070907
  2. HYZAAR [Suspect]
     Route: 048
     Dates: start: 20070822, end: 20070903
  3. PANALDINE [Concomitant]
     Indication: CEREBROVASCULAR ACCIDENT PROPHYLAXIS
     Route: 048
     Dates: start: 20010402, end: 20070910
  4. NORVASC [Concomitant]
     Indication: HYPERTENSION
     Route: 048
     Dates: start: 20020613
  5. OPALMON [Concomitant]
     Indication: PROMOTION OF PERIPHERAL CIRCULATION
     Route: 048
     Dates: start: 20050917
  6. OPALMON [Concomitant]
     Indication: BACK PAIN
     Route: 048
     Dates: start: 20050917
  7. KETOPROFEN [Concomitant]
     Route: 061
  8. RASTINON [Concomitant]
     Indication: DIABETES MELLITUS
     Route: 048
     Dates: start: 20060614
  9. CARDENALIN [Concomitant]
     Route: 048
  10. ZOLPIDEM TARTRATE [Concomitant]
     Route: 048
  11. BLOPRESS [Concomitant]
     Indication: HYPERTENSION
     Route: 048
     Dates: start: 20060923

REACTIONS (4)
  - DEHYDRATION [None]
  - HYPOTENSION [None]
  - OVERDOSE [None]
  - RHABDOMYOLYSIS [None]
